FAERS Safety Report 15946750 (Version 3)
Quarter: 2019Q2

REPORT INFORMATION
  Report Type: Spontaneous
  Country: US (occurrence: US)
  Receive Date: 20190211
  Receipt Date: 20190521
  Transmission Date: 20190711
  Serious: No
  Sender: FDA-Public Use
  Company Number: US-PFIZER INC-2019054515

PATIENT
  Age: 14 Year
  Sex: Male
  Weight: 52.6 kg

DRUGS (1)
  1. GENOTROPIN [Suspect]
     Active Substance: SOMATROPIN
     Indication: COELIAC DISEASE
     Dosage: 2.4 MG, 1X/DAY
     Route: 030

REACTIONS (7)
  - Product dose omission [Unknown]
  - Off label use [Unknown]
  - Wrong technique in device usage process [Unknown]
  - Product use in unapproved indication [Unknown]
  - Thyroxine free increased [Unknown]
  - Anti-transglutaminase antibody increased [Unknown]
  - Blood immunoglobulin A increased [Unknown]

NARRATIVE: CASE EVENT DATE: 20180421
